FAERS Safety Report 15793644 (Version 2)
Quarter: 2019Q1

REPORT INFORMATION
  Report Type: Spontaneous
  Country: US (occurrence: US)
  Receive Date: 20190107
  Receipt Date: 20190204
  Transmission Date: 20190417
  Serious: Yes (Other)
  Sender: FDA-Public Use
  Company Number: US-JNJFOC-20181230763

PATIENT
  Age: 60 Year
  Sex: Male
  Weight: 98.43 kg

DRUGS (11)
  1. SIMPONI [Suspect]
     Active Substance: GOLIMUMAB
     Indication: PSORIATIC ARTHROPATHY
     Route: 058
     Dates: start: 201609, end: 2016
  2. AMLODIPINE [Concomitant]
     Active Substance: AMLODIPINE BESYLATE
     Indication: BLOOD PRESSURE MEASUREMENT
     Route: 065
     Dates: start: 2015
  3. HYDROCODONE/ACETAMINOPHEN [Concomitant]
     Active Substance: ACETAMINOPHEN\HYDROCODONE
     Indication: PAIN MANAGEMENT
     Dosage: 10MG/325MG AS NEEDED
     Route: 065
  4. BABY ASPIRIN [Concomitant]
     Active Substance: ASPIRIN
     Indication: PLATELET COUNT DECREASED
     Route: 065
     Dates: start: 2015
  5. DIAZEPAM. [Concomitant]
     Active Substance: DIAZEPAM
     Indication: ANXIETY
     Dosage: AS NEEDED
     Route: 065
  6. SIMPONI [Suspect]
     Active Substance: GOLIMUMAB
     Indication: PSORIATIC ARTHROPATHY
     Route: 058
     Dates: start: 2016
  7. PRALUENT [Concomitant]
     Active Substance: ALIROCUMAB
     Indication: BLOOD TRIGLYCERIDES
     Route: 058
  8. FENOFIBRATE. [Concomitant]
     Active Substance: FENOFIBRATE
     Indication: BLOOD TRIGLYCERIDES
     Route: 065
     Dates: start: 2018
  9. DIAZEPAM. [Concomitant]
     Active Substance: DIAZEPAM
     Indication: MUSCLE RELAXANT THERAPY
     Dosage: AS NEEDED
     Route: 065
  10. LISINOPRIL. [Concomitant]
     Active Substance: LISINOPRIL
     Indication: BLOOD PRESSURE MEASUREMENT
     Dosage: 2X DAILY
     Route: 065
     Dates: start: 2015
  11. METAMUCIL [Concomitant]
     Active Substance: PLANTAGO SEED
     Route: 065
     Dates: start: 2018

REACTIONS (5)
  - Off label use [Unknown]
  - Psoriatic arthropathy [Not Recovered/Not Resolved]
  - Product use issue [Unknown]
  - Product use complaint [Unknown]
  - Abnormal loss of weight [Unknown]

NARRATIVE: CASE EVENT DATE: 2016
